FAERS Safety Report 7089324-X (Version None)
Quarter: 2010Q4

REPORT INFORMATION
  Report Type: 
  Country: None (occurrence: None)
  Receive Date: 20101108
  Receipt Date: 20101025
  Transmission Date: 20110411
  Serious: No
  Sender: FDA-Public Use
  Company Number: US-JNJFOC-20101007693

PATIENT
  Sex: Female
  Weight: 36.29 kg

DRUGS (4)
  1. DURAGESIC-100 [Suspect]
     Indication: RADICULAR PAIN
     Dosage: NDC NUMBER: 50458-0094-05
     Route: 062
  2. CYTOMEL [Concomitant]
     Indication: THYROID DISORDER
     Route: 048
  3. TRIAMTERENE [Concomitant]
     Indication: FLUID RETENTION
     Route: 048
  4. OXYCODONE [Concomitant]
     Indication: BREAKTHROUGH PAIN
     Route: 048

REACTIONS (5)
  - FEELING ABNORMAL [None]
  - PRODUCT ADHESION ISSUE [None]
  - TREMOR [None]
  - WITHDRAWAL SYNDROME [None]
  - WRONG TECHNIQUE IN DRUG USAGE PROCESS [None]
